FAERS Safety Report 7600266-0 (Version None)
Quarter: 2011Q3

REPORT INFORMATION
  Report Type: 
  Country: None (occurrence: None)
  Receive Date: 20110711
  Receipt Date: 20110630
  Transmission Date: 20111222
  Serious: Yes (Hospitalization, Other)
  Sender: FDA-Public Use
  Company Number: CN-NOVOPROD-331133

PATIENT
  Age: 43 Year
  Sex: Male

DRUGS (2)
  1. NOVOLOG [Suspect]
     Indication: DIABETES MELLITUS
     Dosage: 8U IN THE MORNING, 4U AT NOON AND 6U AT NIGHT
     Route: 058
     Dates: start: 20110618
  2. NOVOLOG [Suspect]
     Dosage: UNK U, UNK
     Route: 058
     Dates: start: 20110601

REACTIONS (3)
  - ERYTHEMA MULTIFORME [None]
  - HENOCH-SCHONLEIN PURPURA [None]
  - PYREXIA [None]
